FAERS Safety Report 16235789 (Version 1)
Quarter: 2019Q2

REPORT INFORMATION
  Report Type: Spontaneous
  Country: CN (occurrence: CN)
  Receive Date: 20190424
  Receipt Date: 20190424
  Transmission Date: 20190711
  Serious: Yes (Other)
  Sender: FDA-Public Use
  Company Number: CN-BAXTER-2019BAX008352

PATIENT
  Age: 48 Year
  Sex: Female
  Weight: 57 kg

DRUGS (4)
  1. ENDOXAN [Suspect]
     Active Substance: CYCLOPHOSPHAMIDE
     Indication: BREAST CANCER FEMALE
     Dosage: DOSAGE FORM: INJECTION, ENDOXAN 940 MG + SODIUM CHLORIDE 50 ML, 1ST CHEMOTHERAPY
     Route: 041
     Dates: start: 20190302, end: 20190302
  2. 0.9% SODIUM CHLORIDE INJECTION [Suspect]
     Active Substance: SODIUM CHLORIDE
     Dosage: TAXOTERE 117 MG + SODIUM CHLORIDE 250 ML, 1ST CHEMOTHERAPY
     Route: 041
     Dates: start: 20190302, end: 20190302
  3. TAXOTERE [Suspect]
     Active Substance: DOCETAXEL
     Indication: BREAST CANCER FEMALE
     Dosage: TAXOTERE 117 MG + SODIUM CHLORIDE 250 ML, 1ST CHEMOTHERAPY
     Route: 041
     Dates: start: 20190302, end: 20190302
  4. 0.9% SODIUM CHLORIDE INJECTION [Suspect]
     Active Substance: SODIUM CHLORIDE
     Indication: MEDICATION DILUTION
     Dosage: ENDOXAN 940 MG + SODIUM CHLORIDE 50 ML, 1ST CHEMOTHERAPY
     Route: 041
     Dates: start: 20190302, end: 20190302

REACTIONS (2)
  - Leukopenia [Recovered/Resolved]
  - Agranulocytosis [Recovered/Resolved]

NARRATIVE: CASE EVENT DATE: 20190311
